FAERS Safety Report 11754234 (Version 1)
Quarter: 2015Q4

REPORT INFORMATION
  Report Type: Spontaneous
  Country: US (occurrence: US)
  Receive Date: 20151119
  Receipt Date: 20151119
  Transmission Date: 20160304
  Serious: No
  Sender: FDA-Public Use
  Company Number: US-MYLANLABS-2015M1016943

PATIENT
  Age: 59 Year
  Sex: Female
  Weight: 46.71 kg

DRUGS (6)
  1. NADOLOL. [Suspect]
     Active Substance: NADOLOL
     Indication: BLOOD PRESSURE MEASUREMENT
  2. NADOLOL. [Suspect]
     Active Substance: NADOLOL
     Indication: OFF LABEL USE
  3. NADOLOL. [Suspect]
     Active Substance: NADOLOL
     Indication: MIGRAINE
     Dosage: 10 MG, QD
     Dates: end: 2009
  4. NADOLOL. [Suspect]
     Active Substance: NADOLOL
     Indication: OFF LABEL USE
  5. NADOLOL. [Suspect]
     Active Substance: NADOLOL
     Indication: BLOOD PRESSURE MEASUREMENT
  6. NADOLOL. [Suspect]
     Active Substance: NADOLOL
     Indication: MIGRAINE
     Dosage: 20 MG, TID
     Dates: start: 2009

REACTIONS (3)
  - Somnolence [Recovered/Resolved]
  - Drug ineffective for unapproved indication [Recovered/Resolved]
  - Bradycardia [Recovered/Resolved]
